FAERS Safety Report 8314529-7 (Version None)
Quarter: 2012Q2

REPORT INFORMATION
  Report Type: 
  Country: None (occurrence: None)
  Receive Date: 20120426
  Receipt Date: 20120424
  Transmission Date: 20120825
  Serious: Yes (Death, Life-Threatening, Hospitalization, Other)
  Sender: FDA-Public Use
  Company Number: DE-ABBOTT-10P-062-0657672-00

PATIENT
  Sex: Female

DRUGS (26)
  1. DURAGESIC-100 [Concomitant]
     Indication: PRODUCT USED FOR UNKNOWN INDICATION
     Dosage: LAST CHANGE 15 MAR 2010
     Route: 062
  2. VOMEX [Concomitant]
     Indication: PRODUCT USED FOR UNKNOWN INDICATION
     Dates: start: 20110101
  3. HYDROMORPHONE HCL [Concomitant]
     Indication: PRODUCT USED FOR UNKNOWN INDICATION
     Dosage: EVERY MORNING
  4. DHC MUNDIPHARMA [Concomitant]
     Indication: PRODUCT USED FOR UNKNOWN INDICATION
  5. METOPROLOL TARTRATE [Concomitant]
     Indication: PRODUCT USED FOR UNKNOWN INDICATION
  6. FERROUS SULFATE TAB [Concomitant]
     Indication: PRODUCT USED FOR UNKNOWN INDICATION
  7. ACTRAPID [Concomitant]
     Indication: PRODUCT USED FOR UNKNOWN INDICATION
     Dosage: ACCORDING TO LAB
  8. TRANSTEC PRO [Concomitant]
     Indication: PRODUCT USED FOR UNKNOWN INDICATION
     Dosage: CHANGE OF PLASTER EVERY 3 DAYS
     Dates: start: 20110101
  9. AMITRIPTYLINE HCL [Concomitant]
     Indication: PRODUCT USED FOR UNKNOWN INDICATION
     Dosage: EVERY NIGHT
  10. CLEXAN MULTIDOSE [Concomitant]
     Indication: PRODUCT USED FOR UNKNOWN INDICATION
     Route: 058
     Dates: start: 20110101, end: 20110101
  11. METHIMAZOLE [Concomitant]
     Indication: PRODUCT USED FOR UNKNOWN INDICATION
     Route: 048
     Dates: start: 20110101
  12. LAXANS-RATIOPHARM PICO [Concomitant]
     Indication: PRODUCT USED FOR UNKNOWN INDICATION
     Route: 048
     Dates: start: 20110101
  13. METHOTREXATE [Concomitant]
     Route: 048
     Dates: start: 20090101, end: 20090601
  14. REPAGLINIDE [Concomitant]
     Indication: PRODUCT USED FOR UNKNOWN INDICATION
  15. ZOLEDRONOC ACID [Concomitant]
     Indication: PRODUCT USED FOR UNKNOWN INDICATION
     Dosage: 2ND INFUSION IN JUN 2009
  16. HALDOL [Concomitant]
     Indication: PRODUCT USED FOR UNKNOWN INDICATION
     Dates: start: 20110101
  17. METHOTREXATE [Concomitant]
     Route: 048
     Dates: start: 19930301, end: 20020401
  18. PREDNISOLONE [Concomitant]
     Indication: PRODUCT USED FOR UNKNOWN INDICATION
     Dosage: EVERY MORNING
  19. DEXAMETHASONE SODIUM PHOSPHATE [Concomitant]
     Indication: PRODUCT USED FOR UNKNOWN INDICATION
     Dates: start: 20110101
  20. METOCLOPRAMIDE [Concomitant]
     Indication: PRODUCT USED FOR UNKNOWN INDICATION
     Dates: start: 20110101
  21. HUMIRA [Suspect]
     Indication: RHEUMATOID ARTHRITIS
     Dates: start: 20060801, end: 20061101
  22. METHOTREXATE [Suspect]
     Indication: RHEUMATOID ARTHRITIS
     Route: 048
     Dates: start: 20100101
  23. METHOTREXATE [Concomitant]
     Route: 048
     Dates: start: 20080401
  24. MIRTAZAPINE [Concomitant]
     Indication: PRODUCT USED FOR UNKNOWN INDICATION
     Dates: start: 20110101
  25. METHOTREXATE [Concomitant]
     Indication: RHEUMATOID ARTHRITIS
     Dosage: WEEKLY
     Route: 048
     Dates: start: 20090701, end: 20100101
  26. METHOTREXATE [Concomitant]
     Route: 048
     Dates: start: 20030501, end: 20070901

REACTIONS (12)
  - METASTATIC GASTRIC CANCER [None]
  - POST PROCEDURAL PNEUMONIA [None]
  - ARTHRALGIA [None]
  - GASTRIC STENOSIS [None]
  - VOCAL CORD PARALYSIS [None]
  - DYSPHONIA [None]
  - APHAGIA [None]
  - HEPATIC CANCER METASTATIC [None]
  - CACHEXIA [None]
  - MUSCULOSKELETAL STIFFNESS [None]
  - DYSPHAGIA [None]
  - METASTASES TO LYMPH NODES [None]
